FAERS Safety Report 9353928 (Version 1)
Quarter: 2013Q2

REPORT INFORMATION
  Report Type: Spontaneous
  Country: FR (occurrence: FR)
  Receive Date: 20130618
  Receipt Date: 20130618
  Transmission Date: 20140414
  Serious: Yes (Hospitalization)
  Sender: FDA-Public Use
  Company Number: FR-PFIZER INC-2013180630

PATIENT
  Age: 75 Year
  Sex: Male

DRUGS (6)
  1. ATENOLOL [Suspect]
     Dosage: 100 MG, DAILY
     Route: 048
     Dates: start: 2012, end: 20130405
  2. UVEDOSE [Concomitant]
     Dosage: UNK
     Route: 065
  3. SERESTA [Concomitant]
     Dosage: UNK
     Route: 065
  4. EUPHYLLINE [Concomitant]
     Dosage: UNK
     Route: 065
  5. INEGY [Concomitant]
     Dosage: UNK
     Route: 065
  6. ALDACTAZINE [Concomitant]
     Dosage: UNK
     Route: 065

REACTIONS (2)
  - Fall [Recovered/Resolved]
  - Sinus bradycardia [Recovered/Resolved]
